FAERS Safety Report 5828998-5 (Version None)
Quarter: 2008Q3

REPORT INFORMATION
  Report Type: 
  Country: None (occurrence: None)
  Receive Date: 20080731
  Receipt Date: 20080722
  Transmission Date: 20090109
  Serious: Yes (Other)
  Sender: FDA-Public Use
  Company Number: PHBS2008FR05200

PATIENT
  Age: 48 Year

DRUGS (2)
  1. BROMOCRIPTINE MESYLATE [Suspect]
     Indication: PARKINSON'S DISEASE
  2. LEVODOPA [Suspect]
     Indication: PARKINSON'S DISEASE

REACTIONS (9)
  - ANHEDONIA [None]
  - APATHY [None]
  - ASTHENIA [None]
  - DECREASED INTEREST [None]
  - DYSKINESIA [None]
  - FATIGUE [None]
  - HYPERSOMNIA [None]
  - ON AND OFF PHENOMENON [None]
  - SURGERY [None]
